FAERS Safety Report 7054671-4 (Version None)
Quarter: 2010Q4

REPORT INFORMATION
  Report Type: 
  Country: None (occurrence: None)
  Receive Date: 20101020
  Receipt Date: 20101008
  Transmission Date: 20110411
  Serious: Yes (Other)
  Sender: FDA-Public Use
  Company Number: US-PFIZER INC-2010098204

PATIENT
  Sex: Female
  Weight: 82 kg

DRUGS (1)
  1. XALATAN [Suspect]
     Indication: GLAUCOMA
     Dosage: 1 GTT, 1X/DAY
     Route: 047
     Dates: start: 20020101

REACTIONS (4)
  - DRY EYE [None]
  - EYE DISORDER [None]
  - EYE SWELLING [None]
  - INTRAOCULAR PRESSURE INCREASED [None]
